FAERS Safety Report 24969092 (Version 1)
Quarter: 2025Q1

REPORT INFORMATION
  Report Type: Spontaneous
  Country: US (occurrence: US)
  Receive Date: 20250214
  Receipt Date: 20250214
  Transmission Date: 20250409
  Serious: No
  Sender: AMNEAL
  Company Number: US-AMNEAL PHARMACEUTICALS-2024-AMRX-00301

PATIENT

DRUGS (1)
  1. RYTARY [Suspect]
     Active Substance: CARBIDOPA\LEVODOPA
     Indication: Parkinson^s disease
     Dosage: 02 CAPSULES, 3X/DAY
     Route: 048

REACTIONS (7)
  - Gait disturbance [Unknown]
  - Fine motor skill dysfunction [Unknown]
  - Hypertonic bladder [Unknown]
  - Balance disorder [Unknown]
  - Vertigo [Unknown]
  - On and off phenomenon [Unknown]
  - Product substitution issue [Unknown]
